FAERS Safety Report 17061655 (Version 1)
Quarter: 2019Q4

REPORT INFORMATION
  Report Type: Spontaneous
  Country: FR (occurrence: FR)
  Receive Date: 20191121
  Receipt Date: 20191121
  Transmission Date: 20200122
  Serious: Yes (Other)
  Sender: FDA-Public Use
  Company Number: FR-MYLANLABS-2019M1112408

PATIENT
  Age: 32 Year
  Sex: Male

DRUGS (5)
  1. CYCLOSERINE. [Suspect]
     Active Substance: CYCLOSERINE
     Indication: LYMPH NODE TUBERCULOSIS
     Dosage: 500 MILLIGRAM, QD
     Route: 048
     Dates: start: 20160924
  2. AMIKACIN. [Suspect]
     Active Substance: AMIKACIN
     Indication: LYMPH NODE TUBERCULOSIS
     Dosage: 1500 MILLIGRAM, QW
     Route: 042
     Dates: start: 20160924
  3. LINEZOLID. [Suspect]
     Active Substance: LINEZOLID
     Indication: LYMPH NODE TUBERCULOSIS
     Dosage: 600 MILLIGRAM, QD
     Route: 048
     Dates: start: 20160924
  4. SIRTURO [Suspect]
     Active Substance: BEDAQUILINE FUMARATE
     Indication: LYMPH NODE TUBERCULOSIS
     Dosage: 600 MILLIGRAM, QW
     Route: 048
     Dates: start: 20160924
  5. GRANUPAS [Suspect]
     Active Substance: AMINOSALICYLIC ACID
     Indication: LYMPH NODE TUBERCULOSIS
     Dosage: 12 GRAM, QD
     Route: 048
     Dates: start: 20160924

REACTIONS (1)
  - Electrocardiogram T wave inversion [Recovering/Resolving]

NARRATIVE: CASE EVENT DATE: 201611
